FAERS Safety Report 5004553-4 (Version None)
Quarter: 2006Q2

REPORT INFORMATION
  Report Type: 
  Country: None (occurrence: None)
  Receive Date: 20060512
  Receipt Date: 20060504
  Transmission Date: 20061013
  Serious: Yes (Other)
  Sender: FDA-Public Use
  Company Number: 200510547BWH

PATIENT
  Age: 75 Year
  Sex: Male
  Weight: 70.7611 kg

DRUGS (3)
  1. LEVITRA [Suspect]
     Indication: ERECTILE DYSFUNCTION
     Dosage: 10 MG, PRN, ORAL; SEE IMAGE
     Route: 048
     Dates: start: 20050320
  2. VIAGRA [Suspect]
     Indication: ERECTILE DYSFUNCTION
  3. ASPIRIN [Concomitant]

REACTIONS (8)
  - AMAUROSIS FUGAX [None]
  - ARTERIOSCLEROTIC RETINOPATHY [None]
  - BLOOD PRESSURE DECREASED [None]
  - CAROTID ARTERY ATHEROMA [None]
  - CATARACT [None]
  - GLAUCOMA [None]
  - HEART RATE DECREASED [None]
  - MACULAR DEGENERATION [None]
